FAERS Safety Report 5878996-0 (Version None)
Quarter: 2008Q3

REPORT INFORMATION
  Report Type: 
  Country: None (occurrence: None)
  Receive Date: 20080912
  Receipt Date: 20080910
  Transmission Date: 20090109
  Serious: Yes (Hospitalization)
  Sender: FDA-Public Use
  Company Number: US-BRISTOL-MYERS SQUIBB COMPANY-14328074

PATIENT
  Age: 67 Year
  Sex: Female

DRUGS (4)
  1. TRIAMCINOLONE ACETONIDE [Suspect]
     Indication: PAIN MANAGEMENT
  2. VERSED [Suspect]
     Indication: SEDATION
  3. FENTANYL [Suspect]
     Indication: SEDATION
  4. BUPIVACAINE [Suspect]
     Dosage: DOSAGE FORM: 2 ML OF 0.25% BUPIVACAINE

REACTIONS (2)
  - APHASIA [None]
  - EYE ROLLING [None]
